FAERS Safety Report 11229665 (Version 2)
Quarter: 2015Q3

REPORT INFORMATION
  Report Type: Report from Study
  Country: CN (occurrence: CN)
  Receive Date: 20150630
  Receipt Date: 20150731
  Transmission Date: 20151125
  Serious: Yes (Hospitalization)
  Sender: FDA-Public Use
  Company Number: CN-ABBVIE-15K-035-1416200-00

PATIENT
  Age: 46 Year
  Sex: Female

DRUGS (1)
  1. HUMIRA [Suspect]
     Active Substance: ADALIMUMAB
     Indication: RHEUMATOID ARTHRITIS
     Route: 058
     Dates: start: 20150116, end: 20150427

REACTIONS (4)
  - Intestinal tuberculosis [Unknown]
  - Hepatic cirrhosis [Unknown]
  - Abdominal distension [Unknown]
  - Ascites [Unknown]

NARRATIVE: CASE EVENT DATE: 20150601
